FAERS Safety Report 7471516-9 (Version None)
Quarter: 2011Q2

REPORT INFORMATION
  Report Type: 
  Country: None (occurrence: None)
  Receive Date: 20110511
  Receipt Date: 20110504
  Transmission Date: 20111010
  Serious: No
  Sender: FDA-Public Use
  Company Number: US-BIOGENIDEC-2011BI016920

PATIENT
  Sex: Female

DRUGS (3)
  1. AVONEX [Suspect]
     Indication: MULTIPLE SCLEROSIS
     Route: 030
     Dates: start: 20110222
  2. AVONEX [Suspect]
     Route: 030
     Dates: start: 20070211, end: 20101122
  3. AVONEX [Suspect]
     Route: 030
     Dates: start: 20001017, end: 20060901

REACTIONS (2)
  - LIVER DISORDER [None]
  - MEMORY IMPAIRMENT [None]
